FAERS Safety Report 24577114 (Version 2)
Quarter: 2024Q4

REPORT INFORMATION
  Report Type: Spontaneous
  Country: FR (occurrence: FR)
  Receive Date: 20241104
  Receipt Date: 20241111
  Transmission Date: 20250114
  Serious: Yes (Hospitalization)
  Sender: BRISTOL-MYERS SQUIBB COMPANY
  Company Number: None

PATIENT
  Age: 63 Year
  Sex: Male
  Weight: 90 kg

DRUGS (1)
  1. ELIQUIS [Suspect]
     Active Substance: APIXABAN
     Indication: Deep vein thrombosis
     Route: 048
     Dates: start: 20240205, end: 20240405

REACTIONS (2)
  - Rash [Recovered/Resolved]
  - Eosinophilia [Recovering/Resolving]

NARRATIVE: CASE EVENT DATE: 20240301
